FAERS Safety Report 13424687 (Version 3)
Quarter: 2017Q2

REPORT INFORMATION
  Report Type: Spontaneous
  Country: US (occurrence: US)
  Receive Date: 20170410
  Receipt Date: 20170613
  Transmission Date: 20170830
  Serious: No
  Sender: FDA-Public Use
  Company Number: US-009507513-1703USA013158

PATIENT
  Age: 18 Year
  Sex: Female
  Weight: 140.14 kg

DRUGS (1)
  1. NEXPLANON [Suspect]
     Active Substance: ETONOGESTREL
     Indication: CONTRACEPTION
     Dosage: ONE ROD
     Route: 059
     Dates: start: 201610, end: 20170328

REACTIONS (6)
  - Difficulty removing drug implant [Recovered/Resolved]
  - Pain [Unknown]
  - Device deployment issue [Recovered/Resolved]
  - Weight increased [Not Recovered/Not Resolved]
  - Drug administration error [Unknown]
  - Vaginal haemorrhage [Recovered/Resolved]

NARRATIVE: CASE EVENT DATE: 2016
